FAERS Safety Report 7625508-7 (Version None)
Quarter: 2011Q3

REPORT INFORMATION
  Report Type: 
  Country: None (occurrence: None)
  Receive Date: 20110721
  Receipt Date: 20110617
  Transmission Date: 20111222
  Serious: No
  Sender: FDA-Public Use
  Company Number: US-KINGPHARMUSA00001-K201100743

PATIENT
  Sex: Female

DRUGS (1)
  1. SEPTRA [Suspect]
     Indication: FURUNCLE
     Dosage: UNK
     Route: 048

REACTIONS (5)
  - NAUSEA [None]
  - OEDEMA PERIPHERAL [None]
  - DIARRHOEA [None]
  - PALPITATIONS [None]
  - PAIN [None]
